FAERS Safety Report 16573782 (Version 2)
Quarter: 2019Q3

REPORT INFORMATION
  Report Type: Spontaneous
  Country: JP (occurrence: JP)
  Receive Date: 20190715
  Receipt Date: 20190729
  Transmission Date: 20191004
  Serious: Yes (Life-Threatening, Hospitalization)
  Sender: FDA-Public Use
  Company Number: JP-CELGENEUS-JPN-20190704856

PATIENT
  Age: 75 Year
  Sex: Male
  Weight: 49.7 kg

DRUGS (5)
  1. RAMUCIRUMAB [Concomitant]
     Active Substance: RAMUCIRUMAB
     Indication: METASTATIC GASTRIC CANCER
     Dosage: 400 MILLIGRAM
     Route: 041
     Dates: start: 20190408, end: 20190429
  2. ABRAXANE [Suspect]
     Active Substance: PACLITAXEL
     Dosage: 145 MILLIGRAM
     Route: 041
     Dates: start: 20190507, end: 20190507
  3. ABRAXANE [Suspect]
     Active Substance: PACLITAXEL
     Indication: METASTATIC GASTRIC CANCER
     Dosage: 160 MILLIGRAM
     Route: 041
     Dates: start: 20190408, end: 20190429
  4. ABRAXANE [Suspect]
     Active Substance: PACLITAXEL
     Dosage: 75 MILLIGRAM
     Route: 041
     Dates: start: 20190527, end: 20190527
  5. RAMUCIRUMAB [Concomitant]
     Active Substance: RAMUCIRUMAB
     Dosage: 400 MILLIGRAM
     Route: 041
     Dates: start: 20190527

REACTIONS (1)
  - Febrile neutropenia [Recovered/Resolved]

NARRATIVE: CASE EVENT DATE: 20190515
